FAERS Safety Report 7886566-8 (Version None)
Quarter: 2011Q4

REPORT INFORMATION
  Report Type: 
  Country: None (occurrence: None)
  Receive Date: 20111102
  Receipt Date: 20110707
  Transmission Date: 20120403
  Serious: Yes (Hospitalization)
  Sender: FDA-Public Use
  Company Number: US-AMGEN-USASP2011032377

PATIENT
  Age: 24 Year
  Sex: Male

DRUGS (3)
  1. ENBREL [Suspect]
     Indication: RHEUMATOID ARTHRITIS
     Dosage: 50 MG, QMO
     Dates: start: 20021101
  2. ENBREL [Suspect]
     Indication: JUVENILE ARTHRITIS
  3. ENBREL [Suspect]
     Indication: PSORIASIS

REACTIONS (6)
  - PSORIASIS [None]
  - BRONCHITIS [None]
  - PILONIDAL CYST [None]
  - ARTHRALGIA [None]
  - DRUG INEFFECTIVE [None]
  - JOINT SWELLING [None]
